FAERS Safety Report 23891245 (Version 1)
Quarter: 2024Q2

REPORT INFORMATION
  Report Type: Other
  Country: FR (occurrence: FR)
  Receive Date: 20240523
  Receipt Date: 20240523
  Transmission Date: 20240716
  Serious: Yes (Other)
  Sender: FDA-Public Use
  Company Number: None

PATIENT
  Age: 49 Year
  Sex: Male

DRUGS (1)
  1. IBUPROFEN [Suspect]
     Active Substance: IBUPROFEN
     Indication: Incorrect dose administered
     Dosage: 7.2 GRAM (3 CP DE 400 MG PAR PRISE DU 16/4 AU SOIR AU 18/4 MIDI INCLUS (AU LIEU DE 1 CP PAR PRISE))
     Route: 048
     Dates: start: 20240416, end: 20240418

REACTIONS (3)
  - Incorrect dose administered [Recovered/Resolved]
  - Accidental overdose [Recovered/Resolved]
  - Abdominal pain [Recovered/Resolved]

NARRATIVE: CASE EVENT DATE: 20240416
